FAERS Safety Report 12325334 (Version 1)
Quarter: 2016Q2

REPORT INFORMATION
  Report Type: Spontaneous
  Country: CN (occurrence: CN)
  Receive Date: 20160502
  Receipt Date: 20160502
  Transmission Date: 20160815
  Serious: Yes (Hospitalization, Other)
  Sender: FDA-Public Use
  Company Number: CN-GILEAD-2016-0211071

PATIENT
  Age: 36 Year
  Sex: Male

DRUGS (1)
  1. HEPSERA [Suspect]
     Active Substance: ADEFOVIR DIPIVOXIL
     Indication: CHRONIC HEPATITIS B
     Dosage: 10 MG, QD
     Route: 048

REACTIONS (47)
  - Pain [Recovering/Resolving]
  - Blood calcium decreased [Recovered/Resolved]
  - Blood alkaline phosphatase increased [Recovered/Resolved]
  - Blood albumin decreased [Recovered/Resolved]
  - Blood 25-hydroxycholecalciferol decreased [Recovered/Resolved]
  - Intervertebral disc protrusion [Unknown]
  - Osteopenia [Unknown]
  - Pain in extremity [Recovering/Resolving]
  - Blood potassium increased [Recovered/Resolved]
  - Alpha 2 globulin decreased [Recovered/Resolved]
  - Intervertebral disc degeneration [Unknown]
  - Renal injury [Recovered/Resolved]
  - Fanconi syndrome acquired [Recovering/Resolving]
  - Condition aggravated [Recovering/Resolving]
  - Arthralgia [Recovering/Resolving]
  - Blood glucose decreased [Recovered/Resolved]
  - Urine sodium decreased [Recovered/Resolved]
  - Albumin urine present [Recovered/Resolved]
  - Hypocalcaemia [Recovered/Resolved]
  - Hypouricaemia [Recovered/Resolved]
  - Glucose urine present [Recovered/Resolved]
  - Blood sodium increased [Recovered/Resolved]
  - Haemosiderosis [Recovering/Resolving]
  - Blood phosphorus decreased [Recovered/Resolved]
  - Hypophosphataemia [Recovered/Resolved]
  - Hyperventilation [Recovering/Resolving]
  - Cough [Recovering/Resolving]
  - Extensor plantar response [Unknown]
  - Blood magnesium increased [Recovered/Resolved]
  - Blood creatine phosphokinase decreased [Recovered/Resolved]
  - Blood urea decreased [Recovered/Resolved]
  - Blood uric acid decreased [Recovered/Resolved]
  - Alpha 1 microglobulin increased [Recovered/Resolved]
  - Blood potassium decreased [Recovered/Resolved]
  - Blood bicarbonate decreased [Recovered/Resolved]
  - Osteoporosis [Recovering/Resolving]
  - Urine phosphorus decreased [Recovered/Resolved]
  - Beta 2 microglobulin increased [Recovered/Resolved]
  - Blood immunoglobulin G increased [Recovered/Resolved]
  - Marrow hyperplasia [Recovering/Resolving]
  - Musculoskeletal chest pain [Recovering/Resolving]
  - Beta globulin decreased [Recovered/Resolved]
  - Serum procollagen type I N-terminal propeptide increased [Recovered/Resolved]
  - Plasma cells increased [Recovering/Resolving]
  - Proteinuria [Recovered/Resolved]
  - Weight decreased [Unknown]
  - Blood creatinine increased [Recovered/Resolved]

NARRATIVE: CASE EVENT DATE: 2013
